FAERS Safety Report 25345593 (Version 1)
Quarter: 2025Q2

REPORT INFORMATION
  Report Type: Spontaneous
  Country: US (occurrence: US)
  Receive Date: 20250522
  Receipt Date: 20250522
  Transmission Date: 20250716
  Serious: No
  Sender: BRISTOL-MYERS SQUIBB COMPANY
  Company Number: US-BRISTOL-MYERS SQUIBB COMPANY-2025-071005

PATIENT
  Age: 43 Year
  Sex: Male

DRUGS (2)
  1. KENALOG [Suspect]
     Active Substance: TRIAMCINOLONE ACETONIDE
     Indication: Tenosynovitis stenosans
  2. BUPIVACAINE [Concomitant]
     Active Substance: BUPIVACAINE

REACTIONS (2)
  - Skin depigmentation [Recovered/Resolved]
  - Off label use [Unknown]
